FAERS Safety Report 7880243-5 (Version None)
Quarter: 2011Q4

REPORT INFORMATION
  Report Type: 
  Country: None (occurrence: None)
  Receive Date: 20111101
  Receipt Date: 20111027
  Transmission Date: 20120403
  Serious: No
  Sender: FDA-Public Use
  Company Number: US-PFIZER INC-2011264318

PATIENT
  Sex: Female

DRUGS (2)
  1. ALAVERT [Interacting]
     Dosage: UNK
  2. PEDIATRIC ADVIL [Suspect]
     Dosage: UNK

REACTIONS (3)
  - SOMNOLENCE [None]
  - DRUG INTERACTION [None]
  - DIZZINESS [None]
